FAERS Safety Report 6427651-7 (Version None)
Quarter: 2009Q4

REPORT INFORMATION
  Report Type: 
  Country: None (occurrence: None)
  Receive Date: 20091104
  Receipt Date: 20091022
  Transmission Date: 20100525
  Serious: Yes (Life-Threatening, Hospitalization)
  Sender: FDA-Public Use
  Company Number: FR-GENENTECH-292994

PATIENT
  Sex: Female

DRUGS (5)
  1. AVASTIN [Suspect]
     Indication: DRUG USE FOR UNKNOWN INDICATION
     Dosage: 225 MG, Q2W
     Route: 042
     Dates: start: 20090610, end: 20090715
  2. FLUOROURACIL [Suspect]
     Indication: DRUG USE FOR UNKNOWN INDICATION
     Dosage: 3260 MG, Q2W
     Route: 042
     Dates: start: 20090408, end: 20090715
  3. CAMPTOSAR [Suspect]
     Indication: DRUG USE FOR UNKNOWN INDICATION
     Dosage: 210 MG, Q2W
     Route: 042
     Dates: start: 20090408, end: 20090715
  4. ELVORINE [Suspect]
     Indication: DRUG USE FOR UNKNOWN INDICATION
     Dosage: 230 MG, Q2W
     Route: 042
     Dates: start: 20090408, end: 20090715
  5. FRAXODI [Suspect]
     Indication: DEEP VEIN THROMBOSIS
     Dosage: 0.6 ML, UNK
     Route: 058
     Dates: start: 20090619, end: 20090801

REACTIONS (2)
  - ANAEMIA [None]
  - DUODENAL ULCER HAEMORRHAGE [None]
